FAERS Safety Report 26013761 (Version 2)
Quarter: 2025Q4

REPORT INFORMATION
  Report Type: Spontaneous
  Country: MA (occurrence: MA)
  Receive Date: 20251107
  Receipt Date: 20251224
  Transmission Date: 20260118
  Serious: Yes (Other)
  Sender: NOVO NORDISK
  Company Number: MA-NOVOPROD-1536268

PATIENT
  Age: 63 Year
  Sex: Male
  Weight: 59 kg

DRUGS (2)
  1. RYZODEG 70/30 [Suspect]
     Active Substance: INSULIN ASPART\INSULIN DEGLUDEC
     Dosage: 14 UNITS IN THE MORNING AND 6 UNITS IN THE EVENING
  2. RYZODEG 70/30 [Suspect]
     Active Substance: INSULIN ASPART\INSULIN DEGLUDEC
     Indication: Product used for unknown indication
     Dosage: UNK
     Dates: start: 202506

REACTIONS (2)
  - Autoimmune disorder [Unknown]
  - Dermatitis allergic [Unknown]
